FAERS Safety Report 12670277 (Version 4)
Quarter: 2016Q4

REPORT INFORMATION
  Report Type: Spontaneous
  Country: GB (occurrence: GB)
  Receive Date: 20160821
  Receipt Date: 20161121
  Transmission Date: 20170207
  Serious: Yes (Hospitalization)
  Sender: FDA-Public Use
  Company Number: GB-MYLANLABS-2016M1035031

PATIENT

DRUGS (1)
  1. CLOZARIL [Suspect]
     Active Substance: CLOZAPINE
     Indication: SCHIZOPHRENIA
     Dosage: UNK
     Route: 048
     Dates: start: 20160520, end: 20160811

REACTIONS (4)
  - Road traffic accident [Recovering/Resolving]
  - Coma scale abnormal [Recovering/Resolving]
  - Suicide attempt [Recovering/Resolving]
  - Intentional self-injury [Recovering/Resolving]
